FAERS Safety Report 13836061 (Version 1)
Quarter: 2017Q3

REPORT INFORMATION
  Report Type: Spontaneous
  Country: US (occurrence: US)
  Receive Date: 20170804
  Receipt Date: 20170804
  Transmission Date: 20171127
  Serious: Yes (Death, Other)
  Sender: FDA-Public Use
  Company Number: US-APOPHARMA USA, INC.-2017AP016330

PATIENT

DRUGS (6)
  1. ALKERAN [Suspect]
     Active Substance: MELPHALAN
     Indication: SURGICAL PRECONDITIONING
     Dosage: 140 MG/M2, QD
     Route: 065
  2. TACROLIMUS. [Concomitant]
     Active Substance: TACROLIMUS
     Indication: PROPHYLAXIS AGAINST GRAFT VERSUS HOST DISEASE
     Dosage: UNK, UNKNOWN
     Route: 065
  3. METHOTREXATE. [Concomitant]
     Active Substance: METHOTREXATE
     Indication: PROPHYLAXIS AGAINST GRAFT VERSUS HOST DISEASE
     Dosage: UNK, UNKNOWN
     Route: 065
  4. CYTARABINE. [Concomitant]
     Active Substance: CYTARABINE
     Indication: SURGICAL PRECONDITIONING
     Dosage: 400 MG/M2, QD
     Route: 065
  5. BICNU [Concomitant]
     Active Substance: CARMUSTINE
     Indication: SURGICAL PRECONDITIONING
     Dosage: 300 MG/M2, QD
     Route: 065
  6. ETOPOSIDE. [Concomitant]
     Active Substance: ETOPOSIDE
     Indication: SURGICAL PRECONDITIONING
     Dosage: 200 MG/M2, QD
     Route: 065

REACTIONS (3)
  - Acute graft versus host disease in intestine [Fatal]
  - Acute graft versus host disease in skin [Fatal]
  - Adenovirus infection [Fatal]
